FAERS Safety Report 11253015 (Version 7)
Quarter: 2016Q1

REPORT INFORMATION
  Report Type: Spontaneous
  Country: BH (occurrence: BH)
  Receive Date: 20150708
  Receipt Date: 20160206
  Transmission Date: 20160525
  Serious: Yes (Other)
  Sender: FDA-Public Use
  Company Number: BH-AMGEN-BHRSP2015066625

PATIENT
  Age: 16 Year
  Sex: Female

DRUGS (6)
  1. ENBREL [Suspect]
     Active Substance: ETANERCEPT
     Indication: JUVENILE IDIOPATHIC ARTHRITIS
     Dosage: 50 MG, WEEKLY
     Route: 058
     Dates: start: 20131202, end: 20150505
  2. FOLIC ACID. [Concomitant]
     Active Substance: FOLIC ACID
     Dosage: UNK
  3. CIPROFLOXACIN. [Concomitant]
     Active Substance: CIPROFLOXACIN
     Dosage: UNK
  4. METHOTREXATE (METHOTREXATE SODIUM) [Suspect]
     Active Substance: METHOTREXATE SODIUM
     Dosage: UNK (TOOK A DOSE)
     Route: 065
     Dates: start: 20150623, end: 201506
  5. METHOTREXATE (METHOTREXATE SODIUM) [Suspect]
     Active Substance: METHOTREXATE SODIUM
     Indication: PRODUCT USED FOR UNKNOWN INDICATION
     Dosage: 25 MG, WEEKLY
     Route: 065
     Dates: start: 20131020, end: 20150505
  6. ENBREL [Suspect]
     Active Substance: ETANERCEPT
     Dosage: UNK (TOOK A DOSE)
     Route: 065
     Dates: start: 20150623, end: 201506

REACTIONS (7)
  - Nail bed bleeding [Unknown]
  - Vascular neoplasm [Unknown]
  - Nail infection [Recovered/Resolved]
  - Skin papilloma [Recovered/Resolved]
  - Pyogenic granuloma [Unknown]
  - Skin haemorrhage [Unknown]
  - Subcutaneous abscess [Unknown]

NARRATIVE: CASE EVENT DATE: 201410
